FAERS Safety Report 7555425-2 (Version None)
Quarter: 2011Q2

REPORT INFORMATION
  Report Type: 
  Country: None (occurrence: None)
  Receive Date: 20110617
  Receipt Date: 20110601
  Transmission Date: 20111010
  Serious: Yes (Hospitalization)
  Sender: FDA-Public Use
  Company Number: US-AMGEN-USACT2011027342

PATIENT
  Age: 75 Year
  Sex: Male

DRUGS (11)
  1. BLINDED DARBEPOETIN ALFA [Suspect]
     Indication: CARDIAC FAILURE
     Dates: start: 20100204, end: 20110523
  2. VITAMIN B-12 [Concomitant]
     Dosage: UNK
  3. COUMADIN [Concomitant]
  4. ASPIRIN [Concomitant]
     Dosage: 81 MG, UNK
  5. FOLIC ACID [Concomitant]
  6. PLACEBO [Suspect]
     Indication: CARDIAC FAILURE
     Dates: start: 20100204, end: 20110523
  7. LASIX [Concomitant]
     Dosage: 40 MG, BID
  8. FERROUS SULFATE TAB [Concomitant]
     Dosage: UNK UNK, TID
  9. SPIRONOLACTONE [Concomitant]
  10. HYDRALAZINE HCL [Concomitant]
  11. METOPROLOL TARTRATE [Concomitant]
     Dosage: 25 MG, QD

REACTIONS (1)
  - CARDIAC FAILURE [None]
